FAERS Safety Report 19147820 (Version 5)
Quarter: 2021Q3

REPORT INFORMATION
  Report Type: Spontaneous
  Country: DE (occurrence: DE)
  Receive Date: 20210417
  Receipt Date: 20210825
  Transmission Date: 20211014
  Serious: Yes (Other)
  Sender: FDA-Public Use
  Company Number: DE-CELLTRION INC.-2021DE004979

PATIENT

DRUGS (11)
  1. REMSIMA [Suspect]
     Active Substance: INFLIXIMAB
     Dosage: UNK
  2. REMSIMA [Suspect]
     Active Substance: INFLIXIMAB
     Indication: RHEUMATOID ARTHRITIS
     Dosage: 120 MG, Q2WEEKS
     Route: 058
     Dates: start: 20210120
  3. REMSIMA [Suspect]
     Active Substance: INFLIXIMAB
     Indication: RHEUMATOID ARTHRITIS
     Dosage: 400 MG, IN WK. 0, 2 AND 6, THEN S.C. IF NECESSARY
     Route: 042
     Dates: start: 20200717
  4. REMSIMA [Suspect]
     Active Substance: INFLIXIMAB
     Dosage: 400 MG, WK. 0, 2 AND 6, THEN S.C. IF NECESSARY
     Route: 042
     Dates: start: 20200731
  5. L?THYROXINE [Concomitant]
     Active Substance: LEVOTHYROXINE
     Dosage: 125 UG, ALTERNATING DAILY (1?0?0)
  6. TORASEMIDE [Concomitant]
     Active Substance: TORSEMIDE
     Dosage: 10 MG, (L?0?0)
  7. LODOTRA [Concomitant]
     Active Substance: PREDNISONE
     Dosage: 2 MG,FURTHER REDUCTION DURING THE COURSE (0?0?0?1)
  8. REMSIMA [Suspect]
     Active Substance: INFLIXIMAB
     Dosage: 120 MG, Q2WEEKS
     Route: 058
     Dates: start: 20210217
  9. ANAFRANIL [Concomitant]
     Active Substance: CLOMIPRAMINE HYDROCHLORIDE
     Dosage: 10 MG, (0?0?0?1 )
  10. REMSIMA [Suspect]
     Active Substance: INFLIXIMAB
     Dosage: 120 MG, Q2WEEKS
     Route: 058
     Dates: start: 20210203
  11. L?THYROXINE [Concomitant]
     Active Substance: LEVOTHYROXINE
     Dosage: 150 UG, ALTERNATING DAILY (1?0?0)

REACTIONS (8)
  - Rheumatoid arthritis [Unknown]
  - Nausea [Unknown]
  - Device defective [Unknown]
  - Device issue [Unknown]
  - Vomiting [Unknown]
  - Disease recurrence [Unknown]
  - Product dose omission issue [Unknown]
  - Headache [Unknown]

NARRATIVE: CASE EVENT DATE: 20200731
